FAERS Safety Report 25299895 (Version 1)
Quarter: 2025Q2

REPORT INFORMATION
  Report Type: Spontaneous
  Country: CA (occurrence: CA)
  Receive Date: 20250512
  Receipt Date: 20250512
  Transmission Date: 20250717
  Serious: Yes (Other)
  Sender: MYLAN
  Company Number: CA-MYLANLABS-202101013139

PATIENT
  Age: 53 Year
  Sex: Female

DRUGS (10)
  1. GABAPENTIN [Suspect]
     Active Substance: GABAPENTIN
     Indication: Pain
     Dosage: 900 MILLIGRAM, TID (3 TIMES A DAY)
  2. GABAPENTIN [Suspect]
     Active Substance: GABAPENTIN
     Dosage: 600 MILLIGRAM, TID (3 TIMES A DAY)
  3. FINGOLIMOD HYDROCHLORIDE [Suspect]
     Active Substance: FINGOLIMOD HYDROCHLORIDE
     Indication: Relapsing-remitting multiple sclerosis
     Dosage: 0.5 MILLIGRAM, QD (1 EVERY 1 DAYS)
  4. FINGOLIMOD HYDROCHLORIDE [Suspect]
     Active Substance: FINGOLIMOD HYDROCHLORIDE
     Dosage: 0.5 MILLIGRAM, QOD (1 EVERY 2 DAYS)
  5. FINGOLIMOD HYDROCHLORIDE [Suspect]
     Active Substance: FINGOLIMOD HYDROCHLORIDE
     Dosage: 0.5 MILLIGRAM, QD (1 EVERY 1 DAYS)
  6. FINGOLIMOD HYDROCHLORIDE [Suspect]
     Active Substance: FINGOLIMOD HYDROCHLORIDE
     Dosage: 0.5 MILLIGRAM, QOD (1 EVERY 2 DAYS)
  7. COVID-19 vaccine [Concomitant]
  8. AZD-1222 [Concomitant]
     Active Substance: AZD-1222
  9. INFLUENZA VIRUS VACCINE [Concomitant]
     Active Substance: INFLUENZA VIRUS VACCINE
  10. ELASOMERAN [Concomitant]
     Active Substance: ELASOMERAN

REACTIONS (37)
  - Aphasia [Not Recovered/Not Resolved]
  - Balance disorder [Not Recovered/Not Resolved]
  - Burning sensation [Not Recovered/Not Resolved]
  - Contusion [Not Recovered/Not Resolved]
  - Disturbance in attention [Not Recovered/Not Resolved]
  - Feeling abnormal [Not Recovered/Not Resolved]
  - Impaired healing [Not Recovered/Not Resolved]
  - Memory impairment [Not Recovered/Not Resolved]
  - Multiple sclerosis [Not Recovered/Not Resolved]
  - Pain in extremity [Not Recovered/Not Resolved]
  - Plantar fasciitis [Not Recovered/Not Resolved]
  - Acrochordon [Not Recovered/Not Resolved]
  - Eye pain [Not Recovered/Not Resolved]
  - Multiple sclerosis relapse [Not Recovered/Not Resolved]
  - Skin discolouration [Not Recovered/Not Resolved]
  - Solar lentigo [Not Recovered/Not Resolved]
  - Temperature intolerance [Not Recovered/Not Resolved]
  - Vision blurred [Not Recovered/Not Resolved]
  - Chronic sinusitis [Not Recovered/Not Resolved]
  - Eye movement disorder [Not Recovered/Not Resolved]
  - Hypokinesia [Not Recovered/Not Resolved]
  - Immune system disorder [Not Recovered/Not Resolved]
  - Lymphocyte count decreased [Not Recovered/Not Resolved]
  - Rhinorrhoea [Not Recovered/Not Resolved]
  - Chest pain [Not Recovered/Not Resolved]
  - Fall [Not Recovered/Not Resolved]
  - Pain [Not Recovered/Not Resolved]
  - Palpitations [Not Recovered/Not Resolved]
  - Vertigo [Not Recovered/Not Resolved]
  - Headache [Not Recovered/Not Resolved]
  - Urinary incontinence [Not Recovered/Not Resolved]
  - Fatigue [Not Recovered/Not Resolved]
  - Hypersensitivity [Not Recovered/Not Resolved]
  - White blood cell count decreased [Not Recovered/Not Resolved]
  - Off label use [Not Recovered/Not Resolved]
  - Product dose omission issue [Not Recovered/Not Resolved]
  - Intentional product misuse [Not Recovered/Not Resolved]
